FAERS Safety Report 6580030-4 (Version None)
Quarter: 2010Q1

REPORT INFORMATION
  Report Type: 
  Country: None (occurrence: None)
  Receive Date: 20100212
  Receipt Date: 20100205
  Transmission Date: 20100710
  Serious: Yes (Hospitalization)
  Sender: FDA-Public Use
  Company Number: FR-MERCK-1002FRA00021

PATIENT
  Age: 90 Year
  Sex: Female

DRUGS (12)
  1. PRIMAXIN [Suspect]
     Indication: URINARY TRACT INFECTION
     Route: 042
  2. LEVOFLOXACIN [Suspect]
     Indication: LUNG DISORDER
     Route: 048
  3. AMOXICILLIN AND CLAVULANATE POTASSIUM [Suspect]
     Indication: LUNG DISORDER
     Route: 048
  4. CEFTRIAXONE SODIUM [Suspect]
     Indication: DYSPNOEA
     Route: 048
     Dates: start: 20080303, end: 20090304
  5. CEFTRIAXONE SODIUM [Suspect]
     Indication: COUGH
     Route: 048
     Dates: start: 20080303, end: 20090304
  6. ACETAMINOPHEN AND PROPOXYPHENE HYDROCHLORIDE [Concomitant]
     Route: 065
  7. RAMIPRIL [Concomitant]
     Route: 065
  8. LACTULOSE [Concomitant]
     Route: 065
  9. BISOPROLOL FUMARATE [Concomitant]
     Route: 065
  10. FUROSEMIDE [Concomitant]
     Route: 065
  11. POTASSIUM CHLORIDE [Concomitant]
     Route: 065
  12. FLUINDIONE [Concomitant]
     Route: 065

REACTIONS (1)
  - CLOSTRIDIAL INFECTION [None]
